FAERS Safety Report 6379469-1 (Version None)
Quarter: 2009Q3

REPORT INFORMATION
  Report Type: 
  Country: None (occurrence: None)
  Receive Date: 20090928
  Receipt Date: 20090918
  Transmission Date: 20100115
  Serious: Yes (Hospitalization)
  Sender: FDA-Public Use
  Company Number: B0594108A

PATIENT
  Age: 62 Year
  Sex: Female

DRUGS (3)
  1. ZOPHREN [Suspect]
     Route: 065
     Dates: start: 20090601, end: 20090901
  2. AUGMENTIN [Concomitant]
     Indication: URINARY TRACT INFECTION
  3. GEMZAR [Concomitant]
     Indication: PANCREATIC NEOPLASM

REACTIONS (4)
  - HEPATITIS [None]
  - HEPATOCELLULAR INJURY [None]
  - INFLAMMATION [None]
  - JAUNDICE CHOLESTATIC [None]
